FAERS Safety Report 8225810-4 (Version None)
Quarter: 2012Q1

REPORT INFORMATION
  Report Type: 
  Country: None (occurrence: None)
  Receive Date: 20120319
  Receipt Date: 20120306
  Transmission Date: 20120608
  Serious: Yes (Hospitalization, Disabling, Other)
  Sender: FDA-Public Use
  Company Number: 2011SP025679

PATIENT
  Age: 31 Year
  Sex: Female
  Weight: 61.2356 kg

DRUGS (1)
  1. NUVARING [Suspect]
     Indication: CONTRACEPTION
     Dates: start: 20080926, end: 20090605

REACTIONS (22)
  - IMPAIRED WORK ABILITY [None]
  - HYPERHIDROSIS [None]
  - ACTIVATED PARTIAL THROMBOPLASTIN TIME PROLONGED [None]
  - LUNG NEOPLASM [None]
  - HYPERVENTILATION [None]
  - VIRAL INFECTION [None]
  - OVARIAN CYST [None]
  - PHARYNGITIS STREPTOCOCCAL [None]
  - PULMONARY HAEMATOMA [None]
  - INTERNATIONAL NORMALISED RATIO DECREASED [None]
  - PULMONARY HAEMORRHAGE [None]
  - CYST [None]
  - BRONCHITIS [None]
  - SINUS HEADACHE [None]
  - PULMONARY EMBOLISM [None]
  - ABDOMINAL PAIN [None]
  - HYPERCOAGULATION [None]
  - MULTIPLE INJURIES [None]
  - THROMBOSIS [None]
  - TEARFULNESS [None]
  - INSOMNIA [None]
  - PAIN [None]
